FAERS Safety Report 14264351 (Version 1)
Quarter: 2017Q4

REPORT INFORMATION
  Report Type: Spontaneous
  Country: GB (occurrence: GB)
  Receive Date: 20171208
  Receipt Date: 20171208
  Transmission Date: 20180321
  Serious: No
  Sender: FDA-Public Use
  Company Number: GB-JAZZ-2017-GB-014604

PATIENT
  Age: 7 Year
  Sex: Male

DRUGS (1)
  1. XYREM [Suspect]
     Active Substance: SODIUM OXYBATE
     Indication: PRODUCT USED FOR UNKNOWN INDICATION
     Dosage: 3.1-3.5 G BID
     Route: 048
     Dates: start: 2012

REACTIONS (2)
  - Therapeutic response decreased [Unknown]
  - Product use issue [Unknown]

NARRATIVE: CASE EVENT DATE: 2012
